FAERS Safety Report 4933065-9 (Version None)
Quarter: 2006Q1

REPORT INFORMATION
  Report Type: 
  Country: None (occurrence: None)
  Receive Date: 20060302
  Receipt Date: 20060302
  Transmission Date: 20060701
  Serious: Yes (Other)
  Sender: FDA-Public Use
  Company Number: None

PATIENT
  Age: 30 Year
  Sex: Female
  Weight: 52.6173 kg

DRUGS (1)
  1. DEPO-PROVERA [Suspect]
     Indication: CONTRACEPTION
     Dosage: 11-12 WEEKS OTHER
     Dates: start: 20000926, end: 20050301

REACTIONS (7)
  - ABORTION SPONTANEOUS [None]
  - AMENORRHOEA [None]
  - DEPRESSION [None]
  - DIZZINESS [None]
  - FATIGUE [None]
  - MIGRAINE [None]
  - MOOD SWINGS [None]
